FAERS Safety Report 8575143-1 (Version None)
Quarter: 2012Q3

REPORT INFORMATION
  Report Type: 
  Country: None (occurrence: None)
  Receive Date: 20120807
  Receipt Date: 20120801
  Transmission Date: 20120928
  Serious: Yes (Death)
  Sender: FDA-Public Use
  Company Number: US-PFIZER INC-2012188047

PATIENT
  Age: 74 Year
  Sex: Male

DRUGS (6)
  1. INLYTA [Suspect]
     Indication: RENAL CANCER
     Dosage: 5 MG, 2X/DAY
     Route: 048
     Dates: start: 20120529, end: 20120701
  2. NIFEDIPINE [Concomitant]
  3. MULTI-VITAMINS [Concomitant]
  4. AVODART [Concomitant]
  5. SIMVASTATIN [Concomitant]
  6. HYDROCODONE [Concomitant]

REACTIONS (1)
  - DEATH [None]
